FAERS Safety Report 18387312 (Version 1)
Quarter: 2020Q4

REPORT INFORMATION
  Report Type: Spontaneous
  Country: US (occurrence: US)
  Receive Date: 20201014
  Receipt Date: 20201014
  Transmission Date: 20210114
  Serious: Yes (Other)
  Sender: FDA-Public Use
  Company Number: None

PATIENT
  Age: 63 Year
  Sex: Female

DRUGS (17)
  1. NARCAN [Concomitant]
     Active Substance: NALOXONE HYDROCHLORIDE
  2. LOSARTAN. [Concomitant]
     Active Substance: LOSARTAN
  3. AMBRISENTAN 10MG TABLETS 30/BO: 10MG [Suspect]
     Active Substance: AMBRISENTAN
     Indication: PULMONARY ARTERIAL HYPERTENSION
     Route: 048
     Dates: start: 201407
  4. LEVOTHYROXINE. [Concomitant]
     Active Substance: LEVOTHYROXINE
  5. FERROUS SULFATE. [Concomitant]
     Active Substance: FERROUS SULFATE
  6. ATORVASTATIN [Concomitant]
     Active Substance: ATORVASTATIN
  7. URSODIOL. [Concomitant]
     Active Substance: URSODIOL
  8. CALCIUM CARBONATE-VIT D3 [Concomitant]
  9. PHENYTOIN. [Concomitant]
     Active Substance: PHENYTOIN
  10. ATROVENT [Concomitant]
     Active Substance: IPRATROPIUM BROMIDE
  11. RIFAXIMIN. [Concomitant]
     Active Substance: RIFAXIMIN
  12. OMEPRAZOLE. [Concomitant]
     Active Substance: OMEPRAZOLE
  13. HYDROCORTISONE TOP CREAM [Concomitant]
  14. SILDENAFIL. [Concomitant]
     Active Substance: SILDENAFIL
  15. FUROSEMIDE. [Concomitant]
     Active Substance: FUROSEMIDE
  16. LACTULOSE. [Concomitant]
     Active Substance: LACTULOSE
  17. NORCO [Concomitant]
     Active Substance: ACETAMINOPHEN\HYDROCODONE BITARTRATE

REACTIONS (2)
  - Condition aggravated [None]
  - Dyspnoea [None]

NARRATIVE: CASE EVENT DATE: 20201005
